FAERS Safety Report 21079637 (Version 1)
Quarter: 2022Q3

REPORT INFORMATION
  Report Type: Spontaneous
  Country: US (occurrence: US)
  Receive Date: 20220714
  Receipt Date: 20220714
  Transmission Date: 20221026
  Serious: No
  Sender: FDA-Public Use
  Company Number: US-PRINSTON PHARMACEUTICAL INC.-2021PRN00335

PATIENT
  Sex: Female

DRUGS (1)
  1. CLONAZEPAM [Suspect]
     Active Substance: CLONAZEPAM
     Route: 060

REACTIONS (4)
  - Product taste abnormal [Unknown]
  - Incorrect route of product administration [Unknown]
  - Product dispensing error [Unknown]
  - Fatigue [Not Recovered/Not Resolved]
